FAERS Safety Report 6335818-1 (Version None)
Quarter: 2009Q3

REPORT INFORMATION
  Report Type: 
  Country: None (occurrence: None)
  Receive Date: 20090828
  Receipt Date: 20090804
  Transmission Date: 20100115
  Serious: Yes (Death, Hospitalization)
  Sender: FDA-Public Use
  Company Number: 353086

PATIENT
  Age: 79 Year
  Sex: Male
  Weight: 101 kg

DRUGS (3)
  1. LEVOPHED     (NOREPINEPHRINE BITRATRATE) INJ, USP (NOREPINEPHRINE) [Suspect]
     Indication: BLOOD PRESSURE MANAGEMENT
     Dates: start: 20080123, end: 20080101
  2. CYTARABINE [Suspect]
     Indication: ACUTE MYELOID LEUKAEMIA
     Dosage: 22 MG, SUBCUTANEOUS
     Route: 058
     Dates: start: 20080117, end: 20080201
  3. TRISENOX [Suspect]
     Indication: ACUTE MYELOID LEUKAEMIA
     Dosage: 25 MG, INTRAVENOUS DRIP
     Route: 041
     Dates: start: 20080117, end: 20090123

REACTIONS (19)
  - ACUTE MYELOID LEUKAEMIA [None]
  - AORTIC VALVE INCOMPETENCE [None]
  - ATELECTASIS [None]
  - BLOOD CULTURE POSITIVE [None]
  - CARDIAC FAILURE CONGESTIVE [None]
  - DISEASE PROGRESSION [None]
  - HYPOKINESIA [None]
  - HYPOTENSION [None]
  - INFECTION [None]
  - LEFT VENTRICULAR DYSFUNCTION [None]
  - MITRAL VALVE INCOMPETENCE [None]
  - NEUTROPENIA [None]
  - PULMONARY OEDEMA [None]
  - PULSE ABSENT [None]
  - SEPSIS [None]
  - STAPHYLOCOCCAL INFECTION [None]
  - SUBENDOCARDIAL ISCHAEMIA [None]
  - TRICUSPID VALVE INCOMPETENCE [None]
  - UNRESPONSIVE TO STIMULI [None]
